FAERS Safety Report 6315879-6 (Version None)
Quarter: 2009Q3

REPORT INFORMATION
  Report Type: 
  Country: None (occurrence: None)
  Receive Date: 20090820
  Receipt Date: 20090810
  Transmission Date: 20100115
  Serious: Yes (Other)
  Sender: FDA-Public Use
  Company Number: US-JNJFOC-20090803686

PATIENT
  Sex: Female
  Weight: 99.79 kg

DRUGS (3)
  1. REMICADE [Suspect]
     Dosage: DOSE: 5 VIALS
     Route: 042
  2. REMICADE [Suspect]
     Dosage: DOSE: 5 VIALS
     Route: 042
  3. REMICADE [Suspect]
     Indication: PSORIATIC ARTHROPATHY
     Dosage: DOSE: 5 VIALS
     Route: 042

REACTIONS (1)
  - UTERINE CANCER [None]
